FAERS Safety Report 7740244-4 (Version None)
Quarter: 2011Q3

REPORT INFORMATION
  Report Type: 
  Country: None (occurrence: None)
  Receive Date: 20110909
  Receipt Date: 20110907
  Transmission Date: 20111222
  Serious: Yes (Other)
  Sender: FDA-Public Use
  Company Number: JP-PFIZER INC-2011196731

PATIENT
  Age: 83 Year
  Sex: Male

DRUGS (12)
  1. ARICEPT [Concomitant]
     Indication: MEMORY IMPAIRMENT
  2. MOHRUS TAPE [Concomitant]
     Dosage: UNK
  3. ARICEPT [Concomitant]
     Indication: IMPAIRED SELF-CARE
  4. NORVASC [Suspect]
     Indication: HYPERTENSION
     Dosage: 5 MG, DAILY
     Route: 048
  5. LOSARTAN POTASSIUM [Concomitant]
     Dosage: UNK
  6. RIZE [Concomitant]
     Dosage: UNK
  7. DIOVAN [Concomitant]
     Dosage: UNK
     Dates: end: 20110801
  8. TICLOPIDINE HCL [Concomitant]
     Dosage: UNK
  9. ARICEPT [Concomitant]
     Indication: DEMENTIA
  10. CEPHADOL [Concomitant]
     Dosage: UNK
     Dates: end: 20110801
  11. ARICEPT [Concomitant]
     Indication: RESTLESSNESS
     Dosage: 5 MG, 1X/DAY
     Route: 048
     Dates: start: 20110301, end: 20110801
  12. ARICEPT [Concomitant]
     Indication: DEPENDENCE

REACTIONS (4)
  - MUSCULOSKELETAL PAIN [None]
  - HEADACHE [None]
  - BLOOD PRESSURE DECREASED [None]
  - GAIT DISTURBANCE [None]
